FAERS Safety Report 9222981 (Version 2)
Quarter: 2013Q2

REPORT INFORMATION
  Report Type: Spontaneous
  Country: UY (occurrence: UY)
  Receive Date: 20130410
  Receipt Date: 20130412
  Transmission Date: 20140414
  Serious: Yes (Other)
  Sender: FDA-Public Use
  Company Number: UY-BAYER-2013-041905

PATIENT
  Age: 33 Year
  Sex: Female

DRUGS (1)
  1. YASMIN [Suspect]
     Dosage: UNK
     Route: 048

REACTIONS (16)
  - Hypomenorrhoea [None]
  - Cystitis [None]
  - Headache [None]
  - Eye pain [None]
  - Breast tenderness [None]
  - Breast discharge [None]
  - Vaginal discharge [None]
  - Vaginal haemorrhage [Not Recovered/Not Resolved]
  - Diarrhoea [None]
  - Mood altered [Not Recovered/Not Resolved]
  - Pain in extremity [None]
  - Hypoaesthesia [None]
  - Blood luteinising hormone increased [Not Recovered/Not Resolved]
  - Vaginal haemorrhage [Not Recovered/Not Resolved]
  - Insomnia [Not Recovered/Not Resolved]
  - Irritability [Not Recovered/Not Resolved]
